FAERS Safety Report 4882249-7 (Version None)
Quarter: 2006Q1

REPORT INFORMATION
  Report Type: 
  Country: None (occurrence: None)
  Receive Date: 20060117
  Receipt Date: 20060110
  Transmission Date: 20060701
  Serious: Yes (Other)
  Sender: FDA-Public Use
  Company Number: GB-AVENTIS-200610347GDDC

PATIENT
  Age: 28 Year
  Sex: Female

DRUGS (3)
  1. METRONIDAZOLE [Suspect]
     Indication: TOOTH ABSCESS
     Route: 048
     Dates: start: 20051219
  2. LEVONELLE [Concomitant]
     Route: 048
     Dates: start: 20051212
  3. NUROFEN [Concomitant]
     Indication: TOOTHACHE
     Route: 048
     Dates: start: 20051218, end: 20051222

REACTIONS (1)
  - IMPETIGO [None]
